FAERS Safety Report 9420837 (Version 1)
Quarter: 2013Q3

REPORT INFORMATION
  Report Type: Spontaneous
  Country: US (occurrence: US)
  Receive Date: 20130725
  Receipt Date: 20130725
  Transmission Date: 20140515
  Serious: No
  Sender: FDA-Public Use
  Company Number: US-ABBOTT-13P-163-1086432-00

PATIENT
  Age: 80 Year
  Sex: Female
  Weight: 72.64 kg

DRUGS (5)
  1. SYNTHROID [Suspect]
     Indication: HYPOTHYROIDISM
     Dosage: 125 MICROGRAMS FIVE DAYS A WEEK AND 137 MICROGRAMS TWO DAY A WEEK
     Dates: start: 1973, end: 201304
  2. SYNTHROID [Suspect]
     Dosage: 125 MICROGRAMS FOUR DAYS A WEEK AND 137 MICROGRAMS THREE DAY A WEEK
     Dates: start: 201304
  3. SYNTHROID [Suspect]
     Indication: HYPOTHYROIDISM
     Dosage: 125 MICROGRAMS FIVE DAYS A WEEK AND 137 MICROGRAMS TWO DAY A WEEK
     Dates: start: 1973, end: 201304
  4. SYNTHROID [Suspect]
     Dosage: 125 MICROGRAMS FOUR DAYS A WEEK AND 137 MICROGRAMS THREE DAY A WEEK
     Dates: start: 201304
  5. ASPIRIN [Concomitant]
     Indication: CARDIAC DISORDER

REACTIONS (2)
  - Fatigue [Unknown]
  - Blood thyroid stimulating hormone increased [Unknown]
